FAERS Safety Report 4608404-9 (Version None)
Quarter: 2005Q1

REPORT INFORMATION
  Report Type: 
  Country: None (occurrence: None)
  Receive Date: 20050311
  Receipt Date: 20050301
  Transmission Date: 20050727
  Serious: Yes (Other)
  Sender: FDA-Public Use
  Company Number: HQWYE746702MAR05

PATIENT
  Age: 58 Year
  Sex: Male

DRUGS (14)
  1. TACROLIMUS, CONTROL FOR SIROLIMUS (TACROLIMUS, CONTROL FOR SIROLIMUS, [Suspect]
     Indication: PROPHYLAXIS AGAINST TRANSPLANT REJECTION
     Dosage: 6 MG DAILY, PROGRESSIVELY REDUCED UNTIL  COMPLETELY STOPPED , ORAL
     Route: 048
  2. ARANESP [Concomitant]
  3. RENAGEL (SEVELAMER) [Concomitant]
  4. SODIUM CARBONATE ^DAK^ (SODIUM BICARBONATE) [Concomitant]
  5. CALCIUM CARBONATE (CALCIUM CARBOANTE) [Concomitant]
  6. ATROVENT [Concomitant]
  7. PULMICORT [Concomitant]
  8. FUROSEMIDE [Concomitant]
  9. ROCALTROL [Concomitant]
  10. ACETYLSALICYLIC ACID SRT [Concomitant]
  11. HYDRALAZINE HCL [Concomitant]
  12. CARVEDILOL [Concomitant]
  13. DOXAZOSIN MESYLATE [Concomitant]
  14. RAMIPRIL [Concomitant]

REACTIONS (2)
  - HAEMODIALYSIS [None]
  - KIDNEY TRANSPLANT REJECTION [None]
